FAERS Safety Report 12646633 (Version 7)
Quarter: 2018Q3

REPORT INFORMATION
  Report Type: Report from Study
  Country: DE (occurrence: DE)
  Receive Date: 20160812
  Receipt Date: 20180803
  Transmission Date: 20181010
  Serious: Yes (Other)
  Sender: FDA-Public Use
  Company Number: DE-ROCHE-1811844

PATIENT
  Age: 101 Year
  Sex: Female
  Weight: 60 kg

DRUGS (2)
  1. RANIBIZUMAB. [Suspect]
     Active Substance: RANIBIZUMAB
     Indication: NEOVASCULAR AGE-RELATED MACULAR DEGENERATION
     Dosage: 0.5 MG, 1X
     Route: 031
     Dates: start: 20160707, end: 20160707
  2. OFTAQUIX [Concomitant]
     Active Substance: LEVOFLOXACIN
     Indication: PRODUCT USED FOR UNKNOWN INDICATION
     Route: 065
     Dates: start: 20160519, end: 20160526

REACTIONS (9)
  - Subretinal fluid [Not Recovered/Not Resolved]
  - Macular degeneration [Not Recovered/Not Resolved]
  - Retinal drusen [Not Recovered/Not Resolved]
  - Retinal neovascularisation [Not Recovered/Not Resolved]
  - Retinal fibrosis [Not Recovered/Not Resolved]
  - Retinal thickening [Not Recovered/Not Resolved]
  - Eye haemorrhage [Not Recovered/Not Resolved]
  - Cystoid macular oedema [Not Recovered/Not Resolved]
  - Eye pain [Recovered/Resolved]

NARRATIVE: CASE EVENT DATE: 20160805
